FAERS Safety Report 9334099 (Version 1)
Quarter: 2013Q2

REPORT INFORMATION
  Report Type: Spontaneous
  Country: US (occurrence: US)
  Receive Date: 20130606
  Receipt Date: 20130606
  Transmission Date: 20140414
  Serious: No
  Sender: FDA-Public Use
  Company Number: US-AMGEN-USASP2013016410

PATIENT
  Age: 68 Year
  Sex: Female

DRUGS (7)
  1. PROLIA [Suspect]
     Indication: OSTEOPOROSIS
     Dosage: UNK
     Dates: start: 201302
  2. NEURONTIN [Concomitant]
     Indication: PAIN
     Dosage: UNK UNK, QHS
  3. CELEXA                             /00582602/ [Concomitant]
     Dosage: 20 MG, QHS
  4. VITAMIN D                          /00107901/ [Concomitant]
  5. OMEGA 3                            /01334101/ [Concomitant]
  6. LUTEIN                             /01638501/ [Concomitant]
  7. CORTISONE [Concomitant]

REACTIONS (5)
  - Ulcer [Unknown]
  - Hypersensitivity [Unknown]
  - Pain of skin [Unknown]
  - Macule [Unknown]
  - Urticaria [Unknown]
